FAERS Safety Report 9720961 (Version 3)
Quarter: 2014Q1

REPORT INFORMATION
  Report Type: Spontaneous
  Country: DE (occurrence: DE)
  Receive Date: 20131129
  Receipt Date: 20140326
  Transmission Date: 20141002
  Serious: Yes (Hospitalization)
  Sender: FDA-Public Use
  Company Number: DE-UCBSA-104211

PATIENT
  Sex: Female
  Weight: 54 kg

DRUGS (4)
  1. VIMPAT [Suspect]
     Indication: PARTIAL SEIZURES
     Dosage: 200 MG - 0 - 250 MG
     Route: 048
     Dates: end: 20131115
  2. KEPPRA [Concomitant]
     Indication: PARTIAL SEIZURES
     Route: 048
  3. APYDAN [Concomitant]
     Indication: PARTIAL SEIZURES
     Route: 048
  4. L-THYROXINE [Concomitant]
     Indication: HYPOTHYROIDISM
     Route: 048

REACTIONS (2)
  - Atrioventricular block second degree [Recovered/Resolved]
  - Overdose [Recovered/Resolved]
